FAERS Safety Report 12886620 (Version 3)
Quarter: 2016Q4

REPORT INFORMATION
  Report Type: Report from Study
  Country: CN (occurrence: CN)
  Receive Date: 20161026
  Receipt Date: 20161219
  Transmission Date: 20170207
  Serious: Yes (Hospitalization)
  Sender: FDA-Public Use
  Company Number: CN-SA-2016SA192976

PATIENT
  Age: 58 Year
  Sex: Male
  Weight: 75 kg

DRUGS (2)
  1. OXALIPLATIN. [Suspect]
     Active Substance: OXALIPLATIN
     Route: 065
     Dates: start: 20160802, end: 20160926
  2. CAPECITABINE. [Suspect]
     Active Substance: CAPECITABINE
     Route: 065
     Dates: start: 20160802, end: 20161010

REACTIONS (1)
  - Atrial fibrillation [Recovered/Resolved]

NARRATIVE: CASE EVENT DATE: 20161019
